FAERS Safety Report 21034896 (Version 1)
Quarter: 2022Q3

REPORT INFORMATION
  Report Type: Spontaneous
  Country: US (occurrence: None)
  Receive Date: 20220701
  Receipt Date: 20220701
  Transmission Date: 20221027
  Serious: No
  Sender: FDA-Public Use
  Company Number: None

PATIENT
  Age: 31 Year
  Sex: Female
  Weight: 74.39 kg

DRUGS (7)
  1. PARAGARD T 380A [Suspect]
     Active Substance: COPPER
     Dates: start: 20220203
  2. NOVOLOG INSULIN [Concomitant]
  3. DEVICE [Concomitant]
     Active Substance: DEVICE
  4. DEVICE [Concomitant]
     Active Substance: DEVICE
  5. VITAMINS C [Concomitant]
  6. VITAMIN D [Concomitant]
     Active Substance: VITAMIN D NOS
  7. CALCIUM [Concomitant]

REACTIONS (1)
  - Vaginal odour [None]

NARRATIVE: CASE EVENT DATE: 20220203
